FAERS Safety Report 6329653-8 (Version None)
Quarter: 2009Q3

REPORT INFORMATION
  Report Type: 
  Country: None (occurrence: None)
  Receive Date: 20090826
  Receipt Date: 20090821
  Transmission Date: 20100115
  Serious: Yes (Death, Other)
  Sender: FDA-Public Use
  Company Number: PE-BRISTOL-MYERS SQUIBB COMPANY-14752026

PATIENT
  Age: 63 Year
  Sex: Female

DRUGS (1)
  1. IXEMPRA KIT [Suspect]
     Dosage: STARTED THERAPY 4 WEEKS AGO.
     Route: 042

REACTIONS (2)
  - LIVER DISORDER [None]
  - NEUTROPENIA [None]
